FAERS Safety Report 18311506 (Version 1)
Quarter: 2020Q3

REPORT INFORMATION
  Report Type: Spontaneous
  Country: CA (occurrence: CA)
  Receive Date: 20200925
  Receipt Date: 20200925
  Transmission Date: 20201103
  Serious: Yes (Other)
  Sender: FDA-Public Use
  Company Number: CA-ORION CORPORATION ORION PHARMA-TREX2020-2153

PATIENT
  Age: 80 Year
  Sex: Female

DRUGS (2)
  1. RIFAMPIN. [Concomitant]
     Active Substance: RIFAMPIN
     Route: 065
     Dates: start: 202007
  2. METHOTREXATE (TRADE NAME UNKNOWN) [Suspect]
     Active Substance: METHOTREXATE
     Indication: PRODUCT USED FOR UNKNOWN INDICATION
     Dosage: Q UNK
     Route: 065

REACTIONS (7)
  - Treatment failure [Unknown]
  - Pain in extremity [Unknown]
  - Sleep disorder [Unknown]
  - Eating disorder [Unknown]
  - Tuberculosis [Unknown]
  - Arthralgia [Unknown]
  - Peripheral swelling [Unknown]
